FAERS Safety Report 4280247-8 (Version None)
Quarter: 2004Q1

REPORT INFORMATION
  Report Type: 
  Country: None (occurrence: None)
  Receive Date: 20040126
  Receipt Date: 20040112
  Transmission Date: 20041129
  Serious: Yes (Disabling)
  Sender: FDA-Public Use
  Company Number: 2004UW01016

PATIENT
  Sex: Male

DRUGS (1)
  1. TENORMIN [Suspect]
     Dosage: 25 MG PO
     Route: 048

REACTIONS (2)
  - ANEURYSM [None]
  - EAR PAIN [None]
